APPROVED DRUG PRODUCT: ALCAINE
Active Ingredient: PROPARACAINE HYDROCHLORIDE
Strength: 0.5%
Dosage Form/Route: SOLUTION/DROPS;OPHTHALMIC
Application: A080027 | Product #001 | TE Code: AT
Applicant: ALCON LABORATORIES INC
Approved: Approved Prior to Jan 1, 1982 | RLD: No | RS: No | Type: RX